FAERS Safety Report 11038709 (Version 3)
Quarter: 2015Q3

REPORT INFORMATION
  Report Type: Spontaneous
  Country: US (occurrence: US)
  Receive Date: 20150416
  Receipt Date: 20150820
  Transmission Date: 20151125
  Serious: Yes (Hospitalization, Other)
  Sender: FDA-Public Use
  Company Number: US-009507513-1504USA015493

PATIENT
  Sex: Female
  Weight: 82.54 kg

DRUGS (4)
  1. JANUVIA [Suspect]
     Active Substance: SITAGLIPTIN PHOSPHATE
     Indication: TYPE 2 DIABETES MELLITUS
     Dosage: 25 MG, QD
     Route: 048
     Dates: start: 2006, end: 20070922
  2. JANUVIA [Suspect]
     Active Substance: SITAGLIPTIN PHOSPHATE
     Indication: TYPE 1 DIABETES MELLITUS
     Dosage: 50 MG, QD
     Route: 048
     Dates: start: 2008, end: 2009
  3. JANUVIA [Suspect]
     Active Substance: SITAGLIPTIN PHOSPHATE
     Dosage: 50 MG, QD
     Route: 048
     Dates: start: 20100913, end: 201211
  4. JANUVIA [Suspect]
     Active Substance: SITAGLIPTIN PHOSPHATE
     Dosage: 100 MG, QD
     Route: 048
     Dates: start: 20090218, end: 20100818

REACTIONS (26)
  - Cholelithiasis [Recovered/Resolved]
  - Hypercholesterolaemia [Unknown]
  - Hypoglycaemia [Unknown]
  - Urinary tract infection bacterial [Unknown]
  - Adenocarcinoma pancreas [Recovered/Resolved]
  - Pancreatic cyst [Recovered/Resolved]
  - Nephrolithiasis [Recovered/Resolved]
  - Sinus tachycardia [Unknown]
  - Drug ineffective [Unknown]
  - Diarrhoea [Unknown]
  - Dehydration [Unknown]
  - Hyperglycaemia [Unknown]
  - Diabetes mellitus inadequate control [Unknown]
  - Urinary tract infection [Not Recovered/Not Resolved]
  - Constipation [Unknown]
  - Pancreaticoduodenectomy [Unknown]
  - Post procedural complication [Unknown]
  - Pyrexia [Unknown]
  - Nephropathy [Recovered/Resolved]
  - Urinary retention [Unknown]
  - Nausea [Unknown]
  - Exostosis [Unknown]
  - Flat affect [Unknown]
  - Diabetic ketoacidosis [Unknown]
  - Hypotension [Unknown]
  - Product use issue [Unknown]

NARRATIVE: CASE EVENT DATE: 2009
